FAERS Safety Report 9337614 (Version 2)
Quarter: 2013Q2

REPORT INFORMATION
  Report Type: Spontaneous
  Country: JP (occurrence: JP)
  Receive Date: 20130607
  Receipt Date: 20130627
  Transmission Date: 20140414
  Serious: Yes (Other)
  Sender: FDA-Public Use
  Company Number: JP-JHP PHARMACEUTICALS, LLC-JHP201300332

PATIENT
  Age: 57 Year
  Sex: Male

DRUGS (6)
  1. DANTRIUM [Suspect]
     Dosage: 100 MG, DAILY
     Route: 048
  2. TERNELIN [Suspect]
     Dosage: 4 MG, DAILY
     Route: 048
  3. MUCOSTA [Concomitant]
  4. LANSOPRAZOLE [Concomitant]
  5. LAXOBERON [Concomitant]
  6. RISPERDAL [Concomitant]

REACTIONS (1)
  - Inappropriate antidiuretic hormone secretion [Recovered/Resolved]
